FAERS Safety Report 9067770 (Version 1)
Quarter: 2013Q1

REPORT INFORMATION
  Report Type: Spontaneous
  Country: ES (occurrence: ES)
  Receive Date: 20130206
  Receipt Date: 20130206
  Transmission Date: 20140127
  Serious: Yes (Death, Hospitalization, Other)
  Sender: FDA-Public Use
  Company Number: ES-SPECTRUM PHARMACEUTICALS, INC.-13-F-ES-00041

PATIENT
  Age: 73 Year
  Sex: Female
  Weight: 64 kg

DRUGS (4)
  1. FLUOROURACIL [Suspect]
     Indication: COLORECTAL CANCER METASTATIC
     Dosage: 2400 MG/M2, 48 HOUR CONTINUOUS INFUSION
     Route: 042
     Dates: start: 20100112
  2. FLUOROURACIL [Suspect]
     Dosage: 400 MG/M2, UNK
     Route: 040
     Dates: start: 20100112
  3. OXALIPLATIN [Suspect]
     Indication: COLORECTAL CANCER METASTATIC
     Dosage: 85 MG/M2, 2 HOUR INFUSION
     Route: 042
     Dates: start: 20100112
  4. LEUCOVORIN                         /00566701/ [Suspect]
     Indication: COLORECTAL CANCER METASTATIC
     Dosage: 200 MG/M2, 2 HOUR INFUSION
     Route: 042
     Dates: start: 20100112

REACTIONS (10)
  - Septic shock [Recovered/Resolved]
  - Thrombocytopenia [Recovered/Resolved]
  - Neutropenia [Recovered/Resolved]
  - Mucosal inflammation [Recovered/Resolved]
  - Vomiting [Recovered/Resolved]
  - Diarrhoea [Recovered/Resolved]
  - Hypophagia [Recovered/Resolved]
  - Malaise [Recovered/Resolved]
  - Pyrexia [Recovered/Resolved]
  - Disease progression [Fatal]
